FAERS Safety Report 15867482 (Version 1)
Quarter: 2019Q1

REPORT INFORMATION
  Report Type: Spontaneous
  Country: US (occurrence: US)
  Receive Date: 20190125
  Receipt Date: 20190125
  Transmission Date: 20190417
  Serious: Yes (Death)
  Sender: FDA-Public Use
  Company Number: US-PERRIGO-19US001064

PATIENT
  Age: 37 Year
  Sex: Female

DRUGS (5)
  1. NICOTINE POLACRILEX [Suspect]
     Active Substance: NICOTINE
     Indication: DRUG ABUSE
     Dosage: UNKNOWN, UNKNOWN
     Route: 065
  2. CAFFEINE. [Suspect]
     Active Substance: CAFFEINE
     Indication: DRUG ABUSE
     Dosage: UNKNOWN, UNKNOWN
     Route: 065
  3. HEROIN [Suspect]
     Active Substance: DIAMORPHINE
     Indication: DRUG ABUSE
     Dosage: UNKNOWN, UNKNOWN
     Route: 065
  4. FENTANYL. [Suspect]
     Active Substance: FENTANYL
     Indication: DRUG ABUSE
     Dosage: UNKNOWN, UNKNOWN
     Route: 065
  5. HYDROXYZINE [Suspect]
     Active Substance: HYDROXYZINE HYDROCHLORIDE
     Indication: DRUG ABUSE
     Dosage: UNKNOWN, UNKNOWN
     Route: 065

REACTIONS (1)
  - Death [Fatal]
